FAERS Safety Report 8091519-3 (Version None)
Quarter: 2012Q1

REPORT INFORMATION
  Report Type: 
  Country: None (occurrence: None)
  Receive Date: 20120129
  Receipt Date: 20110911
  Transmission Date: 20120608
  Serious: No
  Sender: FDA-Public Use
  Company Number: US-ABBOTT-11P-163-0853595-00

PATIENT
  Age: 62 Year
  Sex: Female

DRUGS (8)
  1. VESICARE [Concomitant]
     Indication: URINARY INCONTINENCE
     Dosage: 5 OR 10MG DAILY
  2. ASPIRIN [Concomitant]
     Indication: PROPHYLAXIS
     Dosage: DAILY
  3. INDERAL [Concomitant]
     Indication: HYPERTENSION
  4. CYMBALTA [Concomitant]
     Indication: DEPRESSION
     Dosage: DAILY
  5. METHOTREXATE [Concomitant]
     Indication: PSORIATIC ARTHROPATHY
     Dosage: 7.5MG WEEKLY
  6. LOVASTATIN [Concomitant]
     Indication: BLOOD CHOLESTEROL INCREASED
     Dosage: DAILY
  7. PRILOSEC [Concomitant]
     Indication: DYSPEPSIA
     Dosage: DAILY
  8. HUMIRA [Suspect]
     Indication: PSORIATIC ARTHROPATHY
     Dates: start: 20080701

REACTIONS (1)
  - ANIMAL BITE [None]
